FAERS Safety Report 9724913 (Version 1)
Quarter: 2013Q4

REPORT INFORMATION
  Report Type: Spontaneous
  Country: US (occurrence: US)
  Receive Date: 20131202
  Receipt Date: 20131202
  Transmission Date: 20140711
  Serious: Yes (Other)
  Sender: FDA-Public Use
  Company Number: US-AMARIN PHARMA, INC.-2013AMR000092

PATIENT
  Age: 67 Year
  Sex: Female
  Weight: 79.45 kg

DRUGS (2)
  1. VASCEPA [Suspect]
     Indication: BLOOD CHOLESTEROL INCREASED
     Route: 065
     Dates: start: 201309, end: 201309
  2. VASCEPA [Suspect]
     Route: 065
     Dates: start: 201309, end: 201310

REACTIONS (2)
  - Peritonsillar abscess [Unknown]
  - Headache [Recovered/Resolved]
